FAERS Safety Report 24297806 (Version 1)
Quarter: 2024Q3

REPORT INFORMATION
  Report Type: Report from Study
  Country: NL (occurrence: NL)
  Receive Date: 20240909
  Receipt Date: 20240909
  Transmission Date: 20241017
  Serious: Yes (Other)
  Sender: NOVARTIS
  Company Number: NL-002147023-NVSC2021NL240335

PATIENT
  Age: 38 Year
  Sex: Female

DRUGS (3)
  1. SANDOSTATIN LAR DEPOT [Suspect]
     Active Substance: OCTREOTIDE ACETATE
     Indication: Cystoid macular oedema
     Dosage: 1 DOSAGE FORM, Q4W (1.00 X PER 4 WEEKS))
     Route: 030
     Dates: start: 20240802
  2. SANDOSTATIN LAR DEPOT [Suspect]
     Active Substance: OCTREOTIDE ACETATE
     Dosage: UNK
     Route: 065
     Dates: start: 20231123
  3. SANDOSTATIN LAR DEPOT [Suspect]
     Active Substance: OCTREOTIDE ACETATE
     Dosage: UNK
     Route: 065
     Dates: start: 20240827

REACTIONS (4)
  - Cholecystitis [Unknown]
  - Abdominal pain [Recovering/Resolving]
  - Cholelithiasis [Unknown]
  - Off label use [Not Recovered/Not Resolved]
